FAERS Safety Report 7996987 (Version 2)
Quarter: 2015Q1

REPORT INFORMATION
  Report Type: Spontaneous
  Country: US (occurrence: US)
  Receive Date: 20110619
  Receipt Date: 20150306
  Transmission Date: 20150721
  Serious: Yes (Other)
  Sender: FDA-Public Use
  Company Number: US-ASTRAZENECA-2011SE31349

PATIENT
  Age: 59 Year
  Sex: Female
  Weight: 72.6 kg

DRUGS (14)
  1. NEXIUM [Suspect]
     Active Substance: ESOMEPRAZOLE MAGNESIUM
     Route: 048
  2. XANAX [Concomitant]
     Active Substance: ALPRAZOLAM
  3. PHENERGAN [Concomitant]
     Active Substance: PROMETHAZINE HYDROCHLORIDE
  4. LOPRESSOR [Concomitant]
     Active Substance: METOPROLOL TARTRATE
  5. PRISTIQUE [Concomitant]
  6. CENTRUM SILVER [Concomitant]
     Active Substance: VITAMINS
     Dosage: 1 TABLET
  7. PRILOSEC [Suspect]
     Active Substance: OMEPRAZOLE MAGNESIUM
     Route: 048
  8. MUCINEX [Concomitant]
     Active Substance: GUAIFENESIN
  9. PRAVACHOL [Concomitant]
     Active Substance: PRAVASTATIN SODIUM
  10. ATIVAN [Concomitant]
     Active Substance: LORAZEPAM
  11. NEURONTIN [Concomitant]
     Active Substance: GABAPENTIN
  12. CALCIUM [Concomitant]
     Active Substance: CALCIUM
  13. VISTARIL [Concomitant]
     Active Substance: HYDROXYZINE PAMOATE
     Dosage: ABORTIVE AS NEEDED
  14. SINGULAIR [Concomitant]
     Active Substance: MONTELUKAST SODIUM

REACTIONS (5)
  - Migraine [Unknown]
  - Craniocerebral injury [Unknown]
  - Rubber sensitivity [Unknown]
  - Drug hypersensitivity [Unknown]
  - Abdominal discomfort [Unknown]
